FAERS Safety Report 15337254 (Version 1)
Quarter: 2018Q3

REPORT INFORMATION
  Report Type: Spontaneous
  Country: CO (occurrence: CO)
  Receive Date: 20180831
  Receipt Date: 20180831
  Transmission Date: 20181010
  Serious: Yes (Death, Other)
  Sender: FDA-Public Use
  Company Number: CO-ASTRAZENECA-2018SF08918

PATIENT
  Sex: Female

DRUGS (1)
  1. OLAPARIB. [Suspect]
     Active Substance: OLAPARIB
     Route: 048

REACTIONS (4)
  - Haematemesis [Unknown]
  - Vomiting [Unknown]
  - Nausea [Unknown]
  - Death [Fatal]
